FAERS Safety Report 5595261-X (Version None)
Quarter: 2008Q1

REPORT INFORMATION
  Report Type: 
  Country: None (occurrence: None)
  Receive Date: 20080117
  Receipt Date: 20080108
  Transmission Date: 20080703
  Serious: Yes (Other)
  Sender: FDA-Public Use
  Company Number: DE-PFIZER INC-2007100748

PATIENT
  Sex: Female
  Weight: 73 kg

DRUGS (3)
  1. AROMASIN [Suspect]
     Indication: BREAST CANCER
     Route: 048
  2. VITAMINS [Concomitant]
  3. FOLIC ACID [Concomitant]

REACTIONS (1)
  - LEUKOPENIA [None]
